FAERS Safety Report 7441388-7 (Version None)
Quarter: 2011Q2

REPORT INFORMATION
  Report Type: 
  Country: None (occurrence: None)
  Receive Date: 20110418
  Receipt Date: 20110324
  Transmission Date: 20111010
  Serious: Yes (Death, Hospitalization)
  Sender: FDA-Public Use
  Company Number: WAES 1101USA03631

PATIENT
  Age: 71 Year
  Sex: Female
  Weight: 44.9061 kg

DRUGS (13)
  1. CAP VORINOSTAT 100 MG [Suspect]
     Indication: DIFFUSE LARGE B-CELL LYMPHOMA
     Dosage: 200 MG/BID/PO,
     Route: 048
     Dates: start: 20110208, end: 20110210
  2. CAP VORINOSTAT 100 MG [Suspect]
     Indication: DIFFUSE LARGE B-CELL LYMPHOMA
     Dosage: 200 MG/BID/PO,
     Route: 048
     Dates: start: 20110125, end: 20110127
  3. METOPROLOL TARTRATE [Concomitant]
  4. NYSTATIN [Concomitant]
  5. HYDRALAZINE HCL [Concomitant]
  6. INFUSION (FORM) CARFILZOMIB) 45 MG [Suspect]
     Indication: DIFFUSE LARGE B-CELL LYMPHOMA
     Dosage: 30 MG/DAILYIV; 30 MG/DAILY/IV
     Route: 042
     Dates: start: 20110208, end: 20110209
  7. INFUSION (FORM) CARFILZOMIB) 45 MG [Suspect]
     Indication: DIFFUSE LARGE B-CELL LYMPHOMA
     Dosage: 30 MG/DAILYIV; 30 MG/DAILY/IV
     Route: 042
     Dates: start: 20110125, end: 20110126
  8. ALLOPURINOL [Concomitant]
  9. CEFEPIME [Concomitant]
  10. LEVOTHYROXINE SODIUM [Concomitant]
  11. NORVASC [Concomitant]
  12. PROCHLORPERAZINE TAB [Concomitant]
  13. TETRACYCLINE [Concomitant]

REACTIONS (9)
  - BLOOD CALCIUM DECREASED [None]
  - HYPERTENSION [None]
  - FLUID OVERLOAD [None]
  - CARDIOMEGALY [None]
  - PAIN [None]
  - BLOOD MAGNESIUM DECREASED [None]
  - BLOOD SODIUM DECREASED [None]
  - HAEMATOCRIT DECREASED [None]
  - PNEUMONIA VIRAL [None]
